FAERS Safety Report 7539713-1 (Version None)
Quarter: 2011Q2

REPORT INFORMATION
  Report Type: 
  Country: None (occurrence: None)
  Receive Date: 20110610
  Receipt Date: 20110531
  Transmission Date: 20111010
  Serious: Yes (Other)
  Sender: FDA-Public Use
  Company Number: DE-BAYER-2011-046916

PATIENT

DRUGS (1)
  1. AVELOX [Suspect]
     Dosage: UNK

REACTIONS (1)
  - VOCAL CORD PARALYSIS [None]
